FAERS Safety Report 6751647-9 (Version None)
Quarter: 2010Q2

REPORT INFORMATION
  Report Type: 
  Country: None (occurrence: None)
  Receive Date: 20100602
  Receipt Date: 20100524
  Transmission Date: 20101027
  Serious: Yes (Other)
  Sender: FDA-Public Use
  Company Number: A0856383A

PATIENT
  Sex: Female

DRUGS (3)
  1. TYKERB [Suspect]
     Indication: DRUG USE FOR UNKNOWN INDICATION
     Dosage: 750MG PER DAY
     Route: 065
     Dates: start: 20090412
  2. HERCEPTIN [Suspect]
  3. FEMARA [Concomitant]

REACTIONS (8)
  - CARDIOACTIVE DRUG LEVEL INCREASED [None]
  - DIALYSIS [None]
  - DYSGEUSIA [None]
  - DYSPEPSIA [None]
  - FATIGUE [None]
  - PHOTOPHOBIA [None]
  - SINUSITIS [None]
  - VOMITING [None]
